FAERS Safety Report 5179554-6 (Version None)
Quarter: 2006Q4

REPORT INFORMATION
  Report Type: 
  Country: None (occurrence: None)
  Receive Date: 20061219
  Receipt Date: 20061214
  Transmission Date: 20070319
  Serious: Yes (Other)
  Sender: FDA-Public Use
  Company Number: GB-BOEHRINGER INGELHEIM PHARMACEUTICALS, INC.-2006-DE-06694GD

PATIENT
  Age: 42 Year
  Sex: Female

DRUGS (10)
  1. DIPYRIDAMOLE [Suspect]
  2. WARFARIN SODIUM [Suspect]
  3. ASPIRIN [Concomitant]
  4. METFORMIN HCL [Concomitant]
  5. INSULIN [Concomitant]
     Indication: DIABETES MELLITUS NON-INSULIN-DEPENDENT
  6. CLOPIDOGREL [Concomitant]
  7. OMEPRAZOLE [Concomitant]
  8. ATORVASTATIN [Concomitant]
  9. CIPROFLOXACILLIN [Concomitant]
  10. CLINDAMYCIN [Concomitant]

REACTIONS (4)
  - GENITAL HAEMORRHAGE [None]
  - HAEMOGLOBIN DECREASED [None]
  - SKIN GRAFT FAILURE [None]
  - UPPER GASTROINTESTINAL HAEMORRHAGE [None]
